FAERS Safety Report 24868643 (Version 1)
Quarter: 2025Q1

REPORT INFORMATION
  Report Type: Spontaneous
  Country: US (occurrence: None)
  Receive Date: 20250117
  Receipt Date: 20250117
  Transmission Date: 20250409
  Serious: Yes (Other)
  Sender: FDA-CTU
  Company Number: None

PATIENT
  Age: 56 Year
  Sex: Female
  Weight: 67.5 kg

DRUGS (4)
  1. AMOXICILLIN AND CLAVULANATE POTASSIUM [Suspect]
     Active Substance: AMOXICILLIN\CLAVULANATE POTASSIUM
     Indication: Sinusitis
     Dosage: 14 TABLETS  TWICE A DAY ORAL
     Route: 048
     Dates: start: 20250112, end: 20250113
  2. BIOTIN [Concomitant]
     Active Substance: BIOTIN
  3. MAGNESIUM [Concomitant]
     Active Substance: MAGNESIUM
  4. once daily multivitamin [Concomitant]

REACTIONS (3)
  - Decreased appetite [None]
  - Nausea [None]
  - Body temperature decreased [None]

NARRATIVE: CASE EVENT DATE: 20250113
